FAERS Safety Report 9123072 (Version 3)
Quarter: 2013Q2

REPORT INFORMATION
  Report Type: Report from Study
  Country: US (occurrence: US)
  Receive Date: 20130227
  Receipt Date: 20130624
  Transmission Date: 20140414
  Serious: Yes (Other)
  Sender: FDA-Public Use
  Company Number: US-ELI_LILLY_AND_COMPANY-US201204003213

PATIENT
  Age: 70 Year
  Sex: Female
  Weight: 70.31 kg

DRUGS (27)
  1. TERIPARATIDE [Suspect]
     Indication: OSTEOPOROSIS
     Dosage: 20 UG, QD
     Dates: start: 20120406
  2. TERIPARATIDE [Suspect]
     Dosage: 20 UG, QD
     Route: 058
  3. TERIPARATIDE [Suspect]
     Dosage: 20 UG, QD
  4. TERIPARATIDE [Suspect]
     Dosage: 20 UG, QD
     Route: 058
  5. TERIPARATIDE [Suspect]
     Dosage: UNK UNK, QD
     Dates: start: 201301, end: 201301
  6. SUPRA [Concomitant]
  7. ALEVE [Concomitant]
     Dosage: UNK, EVERY 8 HRS
     Route: 048
  8. ASTELIN [Concomitant]
     Dosage: 137 UG, BID
     Route: 055
  9. BENADRYL [Concomitant]
     Dosage: 25 MG, TID
     Route: 048
  10. BENTYL [Concomitant]
     Dosage: 10 MG, QID
     Route: 048
  11. BUSPAR [Concomitant]
     Dosage: 5 MG, TID
     Route: 048
  12. CALCIUM + VITAMIN D [Concomitant]
     Dosage: UNK
  13. CITALOPRAM [Concomitant]
     Dosage: 10 MG, QD
  14. DHEA [Concomitant]
     Dosage: UNK UNK, QD
  15. LEVOTHYROXINE [Concomitant]
     Dosage: 112 MG, QD
  16. LEXAPRO [Concomitant]
     Dosage: 10 MG, QD
  17. LIDODERM [Concomitant]
     Dosage: UNK
     Route: 061
  18. LOMOTIL [Concomitant]
     Dosage: 2.5 MG, QID
  19. LORAZEPAM [Concomitant]
     Dosage: 2 MG, TID
  20. METHADONE [Concomitant]
     Dosage: 10 MG, EVERY 6 HRS
  21. MORPHINE SULFATE [Concomitant]
     Dosage: UNK
  22. PREDNISONE [Concomitant]
     Dosage: 10 MG, QD
  23. PROTONIX [Concomitant]
     Dosage: 40 MG, QD
  24. SENNA [Concomitant]
     Dosage: UNK, QD
  25. SUDAFED [Concomitant]
     Dosage: 30 MG, EVERY 6 HRS
  26. TRAZODONE [Concomitant]
     Dosage: 100 MG, EVERY 6 HRS
  27. VITAMIN D3 [Concomitant]
     Dosage: 1000 U, QD

REACTIONS (25)
  - Convulsion [Unknown]
  - Fractured sacrum [Unknown]
  - Malaise [Unknown]
  - Tremor [Unknown]
  - Thirst [Unknown]
  - Fatigue [Unknown]
  - Fracture pain [Unknown]
  - Somnolence [Unknown]
  - Injection site erythema [Unknown]
  - Hypertension [Unknown]
  - Injection site bruising [Unknown]
  - Injection site pain [Unknown]
  - Pain [Unknown]
  - Feeling abnormal [Unknown]
  - Visual acuity reduced [Unknown]
  - Hypoacusis [Unknown]
  - Headache [Unknown]
  - Eye disorder [Unknown]
  - Aphasia [Unknown]
  - Dyskinesia [Unknown]
  - Headache [Unknown]
  - Abnormal sensation in eye [Unknown]
  - Anaesthetic complication [Unknown]
  - Nausea [Unknown]
  - Expired drug administered [Unknown]
